FAERS Safety Report 7396055-5 (Version None)
Quarter: 2011Q2

REPORT INFORMATION
  Report Type: 
  Country: None (occurrence: None)
  Receive Date: 20110406
  Receipt Date: 20110322
  Transmission Date: 20111010
  Serious: Yes (Other)
  Sender: FDA-Public Use
  Company Number: JP-JNJFOC-20110305806

PATIENT
  Age: 70 Year
  Sex: Male

DRUGS (3)
  1. VOLTAREN [Concomitant]
     Route: 054
  2. DUROTEP MT [Suspect]
     Indication: CANCER PAIN
     Route: 062
  3. LOXONIN [Concomitant]
     Route: 065

REACTIONS (3)
  - TACHYPNOEA [None]
  - RESPIRATORY DEPRESSION [None]
  - HYPERVENTILATION [None]
